FAERS Safety Report 5979005-5 (Version None)
Quarter: 2008Q4

REPORT INFORMATION
  Report Type: 
  Country: None (occurrence: None)
  Receive Date: 20081126
  Receipt Date: 20081114
  Transmission Date: 20090506
  Serious: Yes (Hospitalization)
  Sender: FDA-Public Use
  Company Number: 2008002987

PATIENT
  Age: 63 Year
  Sex: Male
  Weight: 94 kg

DRUGS (6)
  1. ERLOTINIB (ERLOTINIB) (TABLET) (ERLOTINIB) [Suspect]
     Indication: NON-SMALL CELL LUNG CANCER
     Dosage: 150 MG, QD, ORAL; 100 MG, QD, ORAL
     Route: 048
     Dates: start: 20080423, end: 20080909
  2. ERLOTINIB (ERLOTINIB) (TABLET) (ERLOTINIB) [Suspect]
     Indication: NON-SMALL CELL LUNG CANCER
     Dosage: 150 MG, QD, ORAL; 100 MG, QD, ORAL
     Route: 048
     Dates: start: 20080910, end: 20080924
  3. SUNITINIB/PLACEBO [Suspect]
     Dosage: 37.5 MG, QD, ORAL
     Route: 048
     Dates: start: 20080423, end: 20080924
  4. LORATADINE [Concomitant]
  5. ALGIFEN (DONAGAN) [Concomitant]
  6. REASEC (LOMOTIL) [Concomitant]

REACTIONS (1)
  - ANAEMIA [None]
